FAERS Safety Report 9361778 (Version 1)
Quarter: 2013Q2

REPORT INFORMATION
  Report Type: Spontaneous
  Country: US (occurrence: US)
  Receive Date: 20130621
  Receipt Date: 20130621
  Transmission Date: 20140414
  Serious: Yes (Other)
  Sender: FDA-Public Use
  Company Number: GXBR2013US001259

PATIENT
  Sex: Female

DRUGS (1)
  1. NADOLOL [Suspect]
     Indication: HYPERTENSION
     Dosage: 10 MG (1/2 OF A 20MG TABLET), BID

REACTIONS (4)
  - Hydronephrosis [Not Recovered/Not Resolved]
  - Back pain [Not Recovered/Not Resolved]
  - Muscle spasms [Not Recovered/Not Resolved]
  - Memory impairment [Not Recovered/Not Resolved]
